FAERS Safety Report 4644277-6 (Version None)
Quarter: 2005Q2

REPORT INFORMATION
  Report Type: 
  Country: None (occurrence: None)
  Receive Date: 20050422
  Receipt Date: 20050413
  Transmission Date: 20051028
  Serious: Yes (Hospitalization)
  Sender: FDA-Public Use
  Company Number: 2005-04-0849

PATIENT
  Age: 64 Year
  Sex: Male

DRUGS (2)
  1. BECLOMETHASONE DIPROPIONATE [Suspect]
     Indication: ASTHMA
  2. FLUTICASONE PROPIONATE [Concomitant]

REACTIONS (6)
  - ATROPHY [None]
  - CALCULUS URINARY [None]
  - CUSHING'S SYNDROME [None]
  - GLUCOSE TOLERANCE IMPAIRED [None]
  - HYPOTHALAMO-PITUITARY DISORDERS [None]
  - SELF-MEDICATION [None]
